FAERS Safety Report 23311250 (Version 1)
Quarter: 2023Q4

REPORT INFORMATION
  Report Type: Report from Study
  Country: US (occurrence: US)
  Receive Date: 20231219
  Receipt Date: 20231219
  Transmission Date: 20240110
  Serious: Yes (Hospitalization, Other)
  Sender: FDA-Public Use
  Company Number: US-ABBVIE-5535950

PATIENT
  Sex: Male

DRUGS (2)
  1. DUOPA [Suspect]
     Active Substance: CARBIDOPA\LEVODOPA
     Indication: Parkinson^s disease
     Dosage: DOSE STRENGTH: 4.63-20MG?1 CASSETTE UP TO 16 HOURS EACH DAY?MORNING DOSE: 14.9ML, CONTINUOUS DOSE...
     Route: 050
     Dates: start: 202101
  2. DUOPA [Suspect]
     Active Substance: CARBIDOPA\LEVODOPA

REACTIONS (3)
  - Deep brain stimulation [Recovering/Resolving]
  - Hospitalisation [Unknown]
  - Mobility decreased [Recovering/Resolving]
